FAERS Safety Report 23350198 (Version 1)
Quarter: 2023Q4

REPORT INFORMATION
  Report Type: Spontaneous
  Country: US (occurrence: None)
  Receive Date: 20231228
  Receipt Date: 20231228
  Transmission Date: 20240109
  Serious: No
  Sender: FDA-Public Use
  Company Number: None

PATIENT
  Age: 52 Year
  Sex: Female

DRUGS (5)
  1. AMBRISENTAN [Suspect]
     Active Substance: AMBRISENTAN
     Indication: Pulmonary arterial hypertension
     Dosage: FREQUENCY : DAILY;?
     Route: 048
     Dates: start: 20190911
  2. AMBRISENTAN [Suspect]
     Active Substance: AMBRISENTAN
     Indication: Heritable pulmonary arterial hypertension
  3. VELETRI [Suspect]
     Active Substance: EPOPROSTENOL
  4. TADALAFIL [Suspect]
     Active Substance: TADALAFIL
  5. DAPTOMYCIN [Suspect]
     Active Substance: DAPTOMYCIN

REACTIONS (13)
  - COVID-19 [None]
  - Complication associated with device [None]
  - Catheter site infection [None]
  - Soft tissue infection [None]
  - Drug hypersensitivity [None]
  - Culture urine positive [None]
  - Enterococcal infection [None]
  - Escherichia infection [None]
  - Abdominal distension [None]
  - Back pain [None]
  - Rash [None]
  - Drug ineffective [None]
  - Purulent discharge [None]

NARRATIVE: CASE EVENT DATE: 20231219
